FAERS Safety Report 5856301-3 (Version None)
Quarter: 2008Q3

REPORT INFORMATION
  Report Type: 
  Country: None (occurrence: None)
  Receive Date: 20080825
  Receipt Date: 20080812
  Transmission Date: 20090109
  Serious: Yes (Other)
  Sender: FDA-Public Use
  Company Number: PHHO2008FR09236

PATIENT
  Sex: Male
  Weight: 67 kg

DRUGS (5)
  1. EXELON [Suspect]
     Indication: DEMENTIA ALZHEIMER'S TYPE
     Dosage: 9 MG PATCH
     Dates: start: 20080708, end: 20080725
  2. CORTANCYL [Concomitant]
     Indication: POLYARTHRITIS
  3. SEROPRAM [Concomitant]
     Indication: DEPRESSION
  4. CACIT D3 [Concomitant]
  5. ALENDRONATE SODIUM [Concomitant]

REACTIONS (11)
  - ECZEMA [None]
  - ERYTHEMA [None]
  - EXCORIATION [None]
  - HYPERSENSITIVITY [None]
  - PRURITUS [None]
  - RASH [None]
  - RASH MACULAR [None]
  - RASH PAPULAR [None]
  - SKIN EROSION [None]
  - SKIN EXFOLIATION [None]
  - VIRAL INFECTION [None]
